FAERS Safety Report 6946315-4 (Version None)
Quarter: 2010Q3

REPORT INFORMATION
  Report Type: 
  Country: None (occurrence: None)
  Receive Date: 20100827
  Receipt Date: 20100805
  Transmission Date: 20110219
  Serious: Yes (Hospitalization)
  Sender: FDA-Public Use
  Company Number: FR-GENENTECH-302394

PATIENT
  Sex: Female
  Weight: 50 kg

DRUGS (11)
  1. RITUXIMAB [Suspect]
     Indication: MANTLE CELL LYMPHOMA
     Dosage: 500 MG, QAM
     Route: 041
     Dates: start: 20100112, end: 20100112
  2. RITUXIMAB [Suspect]
     Dosage: UNK
     Route: 041
     Dates: start: 20100325
  3. ARACYTINE [Suspect]
     Indication: MANTLE CELL LYMPHOMA
     Dosage: 3100 MG, QAM
     Route: 041
     Dates: start: 20100112, end: 20100112
  4. ARACYTINE [Suspect]
     Dosage: UNK
     Route: 041
     Dates: start: 20100325, end: 20100326
  5. ARACYTINE [Suspect]
     Route: 041
  6. CARBOPLATIN [Suspect]
     Indication: MANTLE CELL LYMPHOMA
     Dosage: 450 MG, QAM
     Route: 041
     Dates: start: 20100112, end: 20100112
  7. CARBOPLATIN [Suspect]
     Dosage: UNK
     Route: 041
     Dates: start: 20100325
  8. DEXAMETHASONE [Suspect]
     Indication: MANTLE CELL LYMPHOMA
     Dosage: 40 MG, QAM
     Route: 041
     Dates: start: 20100112, end: 20100112
  9. DEXAMETHASONE [Suspect]
     Dosage: UNK
     Route: 041
     Dates: end: 20100328
  10. DEXAMETHASONE [Suspect]
     Route: 041
  11. RABEPRAZOLE SODIUM [Concomitant]
     Indication: PRODUCT USED FOR UNKNOWN INDICATION

REACTIONS (1)
  - CEREBRAL ARTERY EMBOLISM [None]
